FAERS Safety Report 19321103 (Version 3)
Quarter: 2022Q2

REPORT INFORMATION
  Report Type: Report from Study
  Country: JP (occurrence: JP)
  Receive Date: 20210527
  Receipt Date: 20220405
  Transmission Date: 20220720
  Serious: Yes (Other)
  Sender: FDA-Public Use
  Company Number: JP-BIOGEN-2021BI01014839

PATIENT
  Age: 51 Year
  Sex: Female
  Weight: 64 kg

DRUGS (19)
  1. TECFIDERA [Suspect]
     Active Substance: DIMETHYL FUMARATE
     Indication: Relapsing-remitting multiple sclerosis
     Route: 048
     Dates: start: 20180403, end: 20180423
  2. TECFIDERA [Suspect]
     Active Substance: DIMETHYL FUMARATE
     Route: 048
     Dates: start: 20180424, end: 20180522
  3. TECFIDERA [Suspect]
     Active Substance: DIMETHYL FUMARATE
     Dosage: 240 MG/120 MG
     Route: 048
     Dates: start: 20180523, end: 20180605
  4. TECFIDERA [Suspect]
     Active Substance: DIMETHYL FUMARATE
     Route: 048
     Dates: start: 20180606
  5. IFENPRODIL [Concomitant]
     Active Substance: IFENPRODIL
     Indication: Dizziness
     Route: 048
  6. LOXOPROFEN [Concomitant]
     Active Substance: LOXOPROFEN
     Route: 048
  7. ADETPHOS [Concomitant]
     Active Substance: ADENOSINE TRIPHOSPHATE
     Indication: Dizziness
     Route: 048
  8. LIORESAL [Concomitant]
     Active Substance: BACLOFEN
     Indication: Relapsing-remitting multiple sclerosis
     Route: 048
  9. MIYA-BM [Concomitant]
     Active Substance: CLOSTRIDIUM BUTYRICUM SPORES STRAIN M-55
     Indication: Prophylaxis
     Route: 048
  10. MONTELUKAST [Concomitant]
     Active Substance: MONTELUKAST SODIUM
     Indication: Abdominal pain upper
     Route: 048
     Dates: start: 20180403, end: 20180706
  11. VALACYCLOVIR HYDROCHLORIDE [Concomitant]
     Active Substance: VALACYCLOVIR HYDROCHLORIDE
     Indication: Herpes zoster oticus
     Route: 048
     Dates: start: 20180629, end: 20180705
  12. PREDONINE [Concomitant]
     Active Substance: PREDNISOLONE
     Indication: Herpes zoster oticus
     Route: 048
     Dates: start: 20180629, end: 20180701
  13. PREDONINE [Concomitant]
     Active Substance: PREDNISOLONE
     Route: 048
     Dates: start: 20180702, end: 20180709
  14. PREDONINE [Concomitant]
     Active Substance: PREDNISOLONE
     Route: 048
     Dates: start: 20180710, end: 20180716
  15. PREDONINE [Concomitant]
     Active Substance: PREDNISOLONE
     Route: 048
     Dates: start: 20180717, end: 20180723
  16. BUFFERIN [Concomitant]
     Active Substance: ASPIRIN
     Indication: Flushing
     Route: 048
     Dates: start: 20180403, end: 20180731
  17. METHYLCOBALAMIN [Concomitant]
     Active Substance: METHYLCOBALAMIN
     Indication: Herpes zoster oticus
     Route: 048
     Dates: start: 20180629
  18. NEUROTROPIN [Concomitant]
     Active Substance: NEUROTROPIN
     Indication: Herpes zoster oticus
     Route: 048
     Dates: start: 20180731
  19. LYRICA [Concomitant]
     Active Substance: PREGABALIN
     Indication: Herpes zoster oticus
     Route: 048
     Dates: start: 20180731

REACTIONS (6)
  - Herpes zoster oticus [Recovered/Resolved]
  - Flushing [Recovered/Resolved]
  - Abdominal pain upper [Recovered/Resolved]
  - Diarrhoea [Recovered/Resolved]
  - Facial paralysis [Recovered/Resolved]
  - Off label use [Unknown]

NARRATIVE: CASE EVENT DATE: 20180425
